FAERS Safety Report 10543554 (Version 1)
Quarter: 2014Q4

REPORT INFORMATION
  Report Type: Spontaneous
  Country: US (occurrence: None)
  Receive Date: 20141010
  Receipt Date: 20141010
  Transmission Date: 20150529
  Serious: No
  Sender: FDA-Public Use
  Company Number: 163-POMAL-14080953

PATIENT
  Age: 59 Year
  Sex: Male
  Weight: 65.3 kg

DRUGS (4)
  1. LEUKINE (SARGRAMOSTIM) [Concomitant]
  2. INTRON A [Concomitant]
     Active Substance: INTERFERON ALFA-2B
  3. ENOXAPARIN (ENOXAPARIN) [Concomitant]
     Active Substance: ENOXAPARIN
  4. POMALYST [Suspect]
     Active Substance: POMALIDOMIDE
     Indication: PLASMA CELL MYELOMA
     Route: 048
     Dates: start: 201402

REACTIONS (1)
  - Dyspepsia [None]

NARRATIVE: CASE EVENT DATE: 201405
